FAERS Safety Report 20802746 (Version 10)
Quarter: 2022Q4

REPORT INFORMATION
  Report Type: Spontaneous
  Country: GB (occurrence: GB)
  Receive Date: 20220509
  Receipt Date: 20221216
  Transmission Date: 20230113
  Serious: Yes (Hospitalization, Other)
  Sender: FDA-Public Use
  Company Number: GB-ROCHE-3081254

PATIENT
  Age: 68 Year
  Sex: Male
  Weight: 84.8 kg

DRUGS (30)
  1. BEVACIZUMAB [Suspect]
     Active Substance: BEVACIZUMAB
     Indication: Hepatocellular carcinoma
     Dosage: 1200 MILLIGRAM, Q3WK
     Route: 065
     Dates: start: 20220302
  2. ATEZOLIZUMAB [Suspect]
     Active Substance: ATEZOLIZUMAB
     Indication: Hepatocellular carcinoma
     Dosage: 1200 MILLIGRAM, Q3WK
     Route: 040
     Dates: start: 20220302
  3. COCODAMOL [Concomitant]
     Active Substance: ACETAMINOPHEN\CODEINE PHOSPHATE
     Dosage: UNK UNK, AS NECESSARY
     Route: 065
  4. FINASTERIDE [Concomitant]
     Active Substance: FINASTERIDE
     Dosage: UNK UNK, QD
     Route: 065
  5. FINASTERIDE [Concomitant]
     Active Substance: FINASTERIDE
  6. FINASTERIDE [Concomitant]
     Active Substance: FINASTERIDE
  7. ACETAMINOPHEN [Concomitant]
     Active Substance: ACETAMINOPHEN
     Dosage: UNK UNK, AS NECESSARY
  8. PREGABALIN [Concomitant]
     Active Substance: PREGABALIN
     Dosage: 100 MICROGRAM, AS NECESSARY
     Dates: start: 20220701, end: 20220819
  9. PREGABALIN [Concomitant]
     Active Substance: PREGABALIN
     Dosage: 50 MILLIGRAM
     Route: 065
     Dates: start: 20220706, end: 20220920
  10. PROPRANOLOL [Concomitant]
     Active Substance: PROPRANOLOL HYDROCHLORIDE
     Dosage: UNK UNK, BID
     Route: 065
  11. PROPRANOLOL [Concomitant]
     Active Substance: PROPRANOLOL HYDROCHLORIDE
     Dosage: 200 MICROGRAM, AS NECESSARY
     Dates: start: 20220711
  12. SIMVASTATIN [Concomitant]
     Active Substance: SIMVASTATIN
     Dosage: UNK UNK, QD
     Route: 065
  13. CARVEDILOL [Concomitant]
     Active Substance: CARVEDILOL
     Dosage: UNK UNK, QD
     Route: 065
     Dates: start: 20220615
  14. HYDROCORTISONE [Concomitant]
     Active Substance: HYDROCORTISONE
     Dosage: UNK UNK, BID
     Route: 065
     Dates: start: 20220615
  15. HYDROCORTISONE [Concomitant]
     Active Substance: HYDROCORTISONE
     Dosage: UNK, QD
     Route: 065
     Dates: start: 20221104
  16. HYDROCORTISONE [Concomitant]
     Active Substance: HYDROCORTISONE
     Dosage: UNK, QD
     Route: 065
     Dates: start: 20221104
  17. TERLIPRESSIN [Concomitant]
     Active Substance: TERLIPRESSIN
     Dosage: UNK
     Route: 065
     Dates: end: 20220627
  18. THROMBIN [Concomitant]
     Active Substance: THROMBIN
     Dosage: UNK
     Route: 065
     Dates: start: 20220626, end: 20220626
  19. GLICLAZIDE [Concomitant]
     Active Substance: GLICLAZIDE
     Dosage: UNK UNK, QD
     Route: 065
     Dates: start: 20220703
  20. LACTULOSE [Concomitant]
     Active Substance: LACTULOSE
     Dosage: 15 ML , AS NECESSARY
     Route: 065
     Dates: start: 20220703
  21. LANSOPRAZOLE [Concomitant]
     Active Substance: LANSOPRAZOLE
     Dosage: 30 MILLIGRAM, QD
     Route: 065
     Dates: start: 20220708
  22. SPIRONOLACTONE [Concomitant]
     Active Substance: SPIRONOLACTONE
     Dosage: UNK UNK, QD
     Route: 065
     Dates: start: 20220611
  23. POLYETHYLENE GLYCOLS [Concomitant]
     Active Substance: POLYETHYLENE GLYCOLS
     Indication: Constipation
     Dosage: UNK UNK, QD
     Route: 065
     Dates: start: 20220825
  24. ALBUTEROL [Concomitant]
     Active Substance: ALBUTEROL
     Dosage: 4 MICROGRAM, AS NECESSARY
     Route: 065
     Dates: start: 20220711
  25. CIPROFLOXACIN [Concomitant]
     Active Substance: CIPROFLOXACIN
  26. FENTANYL [Concomitant]
     Active Substance: FENTANYL
     Indication: Prophylaxis
     Dosage: UNK
     Route: 065
     Dates: start: 20220708, end: 20220708
  27. MIDAZOLAM [Concomitant]
     Active Substance: MIDAZOLAM
     Indication: Prophylaxis
     Dosage: UNK
     Route: 065
     Dates: start: 20220708, end: 20220708
  28. CALCIUM CARBONATE\CHOLECALCIFEROL [Concomitant]
     Active Substance: CALCIUM CARBONATE\CHOLECALCIFEROL
     Dosage: UNK UNK, QD
     Dates: start: 20220707
  29. ANUSOL NOS [Concomitant]
     Active Substance: BALSAM PERU\BENZYL BENZOATE\BISMUTH HYDROXIDE\BISMUTH SUBGALLATE\HYDROCORTISONE ACETATE\ZINC OXIDE
     Dosage: UNK UNK, BID
     Dates: start: 20220707
  30. Sandocal [Concomitant]
     Dosage: UNK UNK, BID
     Dates: start: 20220707, end: 20220710

REACTIONS (18)
  - Urinary retention [Recovered/Resolved]
  - Haematemesis [Recovered/Resolved]
  - Melaena [Recovered/Resolved]
  - Rectal haemorrhage [Recovered/Resolved]
  - Gastric varices [Not Recovered/Not Resolved]
  - Cortisol decreased [Recovered/Resolved]
  - Varices oesophageal [Not Recovered/Not Resolved]
  - Contusion [Recovered/Resolved]
  - Fatigue [Not Recovered/Not Resolved]
  - Diarrhoea [Recovered/Resolved]
  - Decreased appetite [Recovered/Resolved]
  - Hyponatraemia [Recovered/Resolved]
  - Sciatica [Not Recovered/Not Resolved]
  - Muscle spasms [Not Recovered/Not Resolved]
  - Insomnia [Not Recovered/Not Resolved]
  - Blood calcium decreased [Recovered/Resolved]
  - Haemorrhoids [Not Recovered/Not Resolved]
  - Blood magnesium decreased [Recovered/Resolved]

NARRATIVE: CASE EVENT DATE: 20220305
